FAERS Safety Report 8060378-7 (Version None)
Quarter: 2012Q1

REPORT INFORMATION
  Report Type: 
  Country: None (occurrence: None)
  Receive Date: 20120120
  Receipt Date: 20120111
  Transmission Date: 20120608
  Serious: Yes (Hospitalization, Other)
  Sender: FDA-Public Use
  Company Number: GB-GILEAD-2011-0046921

PATIENT
  Sex: Male

DRUGS (10)
  1. LAMIVUDINE [Suspect]
     Dosage: 100MG PER DAY
     Route: 048
  2. ANTAGOSTIN [Concomitant]
     Route: 048
  3. HEPSERA [Suspect]
     Indication: HEPATITIS B
     Dosage: 10MG PER DAY
     Route: 048
     Dates: start: 20040901, end: 20111101
  4. LOSARTAN POTASSIUM [Concomitant]
     Dosage: 50MG PER DAY
     Route: 048
  5. ETODOLAC [Concomitant]
     Dosage: 400MG PER DAY
     Route: 048
  6. ANTAGOSTIN [Concomitant]
     Route: 048
  7. LOSARTAN POTASSIUM [Concomitant]
     Dosage: 50MG PER DAY
     Route: 048
  8. HEPSERA [Suspect]
     Dosage: 10MG PER DAY
     Route: 048
     Dates: start: 20040901, end: 20111101
  9. ETODOLAC [Concomitant]
     Dosage: 400MG PER DAY
     Route: 048
  10. LAMIVUDINE [Suspect]
     Indication: HEPATITIS B
     Dosage: 100 MG, QD
     Route: 048
     Dates: start: 20011001, end: 20111101

REACTIONS (11)
  - BLOOD ALKALINE PHOSPHATASE INCREASED [None]
  - OSTEOMALACIA [None]
  - FIBULA FRACTURE [None]
  - TIBIA FRACTURE [None]
  - ARTHRALGIA [None]
  - BLOOD PHOSPHORUS DECREASED [None]
  - MULTIPLE FRACTURES [None]
  - BLOOD CREATININE INCREASED [None]
  - FANCONI SYNDROME ACQUIRED [None]
  - RIB FRACTURE [None]
  - BLOOD URIC ACID DECREASED [None]
